FAERS Safety Report 13568116 (Version 2)
Quarter: 2017Q3

REPORT INFORMATION
  Report Type: Spontaneous
  Country: AT (occurrence: AT)
  Receive Date: 20170522
  Receipt Date: 20170707
  Transmission Date: 20171127
  Serious: No
  Sender: FDA-Public Use
  Company Number: AT-ALKABELLO-2017AA001751

PATIENT
  Age: 40 Year
  Sex: Female

DRUGS (1)
  1. ACARIZAX 12 SQ-HDM LYOPHILISAT ZUM EINNEHMEN [Suspect]
     Active Substance: DERMATOPHAGOIDES FARINAE\DERMATOPHAGOIDES PTERONYSSINUS
     Dosage: DOSE UNIT:12 SQ-HOUSE DUST MITE
     Route: 060
     Dates: start: 20170406

REACTIONS (1)
  - Colitis ulcerative [Recovered/Resolved]

NARRATIVE: CASE EVENT DATE: 201704
